FAERS Safety Report 6816495-X (Version None)
Quarter: 2010Q3

REPORT INFORMATION
  Report Type: 
  Country: None (occurrence: None)
  Receive Date: 20100705
  Receipt Date: 20100622
  Transmission Date: 20110219
  Serious: Yes (Other)
  Sender: FDA-Public Use
  Company Number: PHHY2010FR29072

PATIENT
  Sex: Male
  Weight: 100 kg

DRUGS (2)
  1. EXFORGE [Suspect]
     Indication: HYPERTENSION
     Dosage: 160/10 MG, QD
     Route: 048
     Dates: start: 20080430, end: 20080710
  2. LODOZ [Concomitant]
     Dosage: 5/6.25 MG

REACTIONS (2)
  - OEDEMA PERIPHERAL [None]
  - ULCER [None]
